FAERS Safety Report 15665628 (Version 3)
Quarter: 2020Q3

REPORT INFORMATION
  Report Type: Spontaneous
  Country: CA (occurrence: CA)
  Receive Date: 20181128
  Receipt Date: 20200702
  Transmission Date: 20201102
  Serious: Yes (Life-Threatening, Hospitalization)
  Sender: FDA-Public Use
  Company Number: CA-NOVOPROD-634653

PATIENT
  Age: 41 Year
  Sex: Female

DRUGS (8)
  1. GLUCOSE [Suspect]
     Active Substance: DEXTROSE
     Dosage: 2000.00 ML
     Route: 042
  2. RIVOTRIL [Concomitant]
     Active Substance: CLONAZEPAM
     Indication: PRODUCT USED FOR UNKNOWN INDICATION
     Dosage: 2.0 MILLIGRAM
     Route: 065
  3. NOVORAPID [Suspect]
     Active Substance: INSULIN ASPART
     Indication: SUICIDE ATTEMPT
     Dosage: 300 IU
     Route: 058
  4. GLUCOSE [Suspect]
     Active Substance: DEXTROSE
     Dosage: 50.00 ML
     Route: 042
  5. CLONAPAM [Suspect]
     Active Substance: CLONAZEPAM
     Indication: PRODUCT USED FOR UNKNOWN INDICATION
     Dosage: 2.0 MILLIGRAM
     Route: 048
  6. DEXTROSE. [Concomitant]
     Active Substance: DEXTROSE
     Indication: PRODUCT USED FOR UNKNOWN INDICATION
     Dosage: INTRAVENOUS DRIP 10.0 PERCENT   UNKNOWN 50.0 PERCENT
     Route: 042
  7. ZOPICLONE [Suspect]
     Active Substance: ZOPICLONE
     Indication: SUICIDE ATTEMPT
     Dosage: 45.0 MILLIGRAM
     Route: 048
  8. GLUCOSE [Suspect]
     Active Substance: DEXTROSE
     Indication: PRODUCT USED FOR UNKNOWN INDICATION
     Dosage: 12.0 DOSAGE FORMS
     Route: 042

REACTIONS (10)
  - Lethargy [Recovered/Resolved]
  - Hyperhidrosis [Recovered/Resolved]
  - Ataxia [Recovered/Resolved]
  - Blood pressure decreased [Recovered/Resolved]
  - Hypoglycaemia [Recovered/Resolved]
  - Intentional overdose [Recovered/Resolved]
  - Oedema peripheral [Recovered/Resolved]
  - Suicide attempt [Recovered/Resolved]
  - Blood potassium decreased [Recovered/Resolved]
  - Somnolence [Recovered/Resolved]
